FAERS Safety Report 4625414-6 (Version None)
Quarter: 2005Q2

REPORT INFORMATION
  Report Type: 
  Country: None (occurrence: None)
  Receive Date: 20050324
  Receipt Date: 20040702
  Transmission Date: 20051028
  Serious: Yes (Other)
  Sender: FDA-Public Use
  Company Number: 04-257-0926

PATIENT
  Age: 6 Year
  Sex: Male

DRUGS (1)
  1. CLADRIBINE [Suspect]
     Indication: MALIGNANT HISTIOCYTOSIS
     Dosage: 5MG IV OVER 1H FOR 5 DAYS
     Route: 042
     Dates: start: 20040628, end: 20040702

REACTIONS (1)
  - RASH [None]
